FAERS Safety Report 7176932-0 (Version None)
Quarter: 2010Q4

REPORT INFORMATION
  Report Type: 
  Country: None (occurrence: None)
  Receive Date: 20101220
  Receipt Date: 20101210
  Transmission Date: 20110411
  Serious: Yes (Other)
  Sender: FDA-Public Use
  Company Number: CA-JNJCH-2010028845

PATIENT
  Age: 65 Year
  Sex: Female
  Weight: 79.8 kg

DRUGS (9)
  1. ULTRA STRENGTH ROLAIDS SOFTCHEW VANILLA [Suspect]
     Indication: DYSPEPSIA
     Dosage: TEXT:ONE AS NEEDED
     Route: 048
  2. DOMPERIDONE [Concomitant]
     Indication: GASTROINTESTINAL DISORDER
     Dosage: TEXT:20MG A DAY
     Route: 065
  3. PARIET [Concomitant]
     Indication: GASTROINTESTINAL DISORDER
     Dosage: TEXT:40MG A DAY
     Route: 065
  4. ZANTAC [Concomitant]
     Indication: GASTROINTESTINAL DISORDER
     Dosage: TEXT:300 ONCE A DAY
     Route: 065
  5. SYNTHROID [Concomitant]
     Indication: THYROID DISORDER
     Dosage: TEXT:0.025MG A DAY
     Route: 065
  6. VENTOLIN [Concomitant]
     Indication: ASTHMA
     Dosage: TEXT:TWICE DAILY
     Route: 055
  7. ALVESCO [Concomitant]
     Indication: ASTHMA
     Dosage: TEXT:TWICE DAILY
     Route: 055
  8. BACTRIN [Concomitant]
     Indication: LOWER RESPIRATORY TRACT INFECTION
     Dosage: TEXT:320MG A DAY
     Route: 065
  9. ZOMIG [Concomitant]
     Indication: MIGRAINE
     Dosage: TEXT:2.5MG A DAY
     Route: 065

REACTIONS (3)
  - ORAL DISCOMFORT [None]
  - ORAL FUNGAL INFECTION [None]
  - PRODUCT QUALITY ISSUE [None]
